FAERS Safety Report 18090859 (Version 3)
Quarter: 2020Q3

REPORT INFORMATION
  Report Type: Spontaneous
  Country: US (occurrence: US)
  Receive Date: 20200730
  Receipt Date: 20200818
  Transmission Date: 20201103
  Serious: Yes (Hospitalization, Other)
  Sender: FDA-Public Use
  Company Number: US-ACCORD-193527

PATIENT
  Age: 64 Year
  Sex: Male
  Weight: 79.6 kg

DRUGS (16)
  1. IRON [Concomitant]
     Active Substance: IRON
  2. ATORVASTATIN [Concomitant]
     Active Substance: ATORVASTATIN
     Dosage: NIGHTLY
  3. METOPROLOL. [Concomitant]
     Active Substance: METOPROLOL
  4. SILDENAFIL. [Concomitant]
     Active Substance: SILDENAFIL
     Dosage: (1?2 PILLS DAILY AS NEEDED)
  5. ERGOCALCIFEROL. [Concomitant]
     Active Substance: ERGOCALCIFEROL
  6. EVEROLIMUS. [Concomitant]
     Active Substance: EVEROLIMUS
     Indication: IMMUNOSUPPRESSANT DRUG THERAPY
     Dosage: (SINCE 16 MONTHS)
  7. AMILORIDE [Concomitant]
     Active Substance: AMILORIDE
  8. ALLOPURINOL. [Concomitant]
     Active Substance: ALLOPURINOL
  9. TIMOLOL. [Concomitant]
     Active Substance: TIMOLOL
  10. HYDRALAZINE [Concomitant]
     Active Substance: HYDRALAZINE HYDROCHLORIDE
  11. PREDNISONE. [Concomitant]
     Active Substance: PREDNISONE
     Indication: IMMUNOSUPPRESSANT DRUG THERAPY
     Dosage: (SINCE 5 Y)
     Dates: start: 2013
  12. TACROLIMUS. [Suspect]
     Active Substance: TACROLIMUS
     Indication: IMMUNOSUPPRESSION
     Dosage: 1 MG IN THE MORNING AND 2 MG AT NIGHT (SINCE 5 Y),
     Dates: start: 2013, end: 2018
  13. LATANOPROST. [Concomitant]
     Active Substance: LATANOPROST
     Indication: OPEN ANGLE GLAUCOMA
  14. BUMETANIDE. [Concomitant]
     Active Substance: BUMETANIDE
  15. METOLAZONE. [Concomitant]
     Active Substance: METOLAZONE
     Dosage: 2.5 MG 3 TIMES A WEEK
  16. WARFARIN [Concomitant]
     Active Substance: WARFARIN
     Dosage: 5 MG FOR 4 DAYS A WEEK AND 7.5 MG FOR 3 DAYS A WEEK

REACTIONS (5)
  - Mania [Recovered/Resolved]
  - Psychotic disorder [Recovered/Resolved]
  - Acute kidney injury [Recovered/Resolved]
  - Drug level increased [Recovered/Resolved]
  - Extra dose administered [Recovered/Resolved]

NARRATIVE: CASE EVENT DATE: 2018
